FAERS Safety Report 5711598-5 (Version None)
Quarter: 2008Q2

REPORT INFORMATION
  Report Type: 
  Country: None (occurrence: None)
  Receive Date: 20080421
  Receipt Date: 20080411
  Transmission Date: 20081010
  Serious: Yes (Hospitalization)
  Sender: FDA-Public Use
  Company Number: CH-BRISTOL-MYERS SQUIBB COMPANY-14031256

PATIENT
  Age: 22 Year
  Sex: Male

DRUGS (2)
  1. ABATACEPT [Suspect]
     Indication: COLITIS ULCERATIVE
     Route: 042
     Dates: start: 20071217
  2. MUTAFLOR [Concomitant]
     Dosage: 1 DOSAGE FORM = 1 CAPSULE.
     Dates: start: 20070911

REACTIONS (1)
  - COLITIS ULCERATIVE [None]
